FAERS Safety Report 7958955-4 (Version None)
Quarter: 2011Q4

REPORT INFORMATION
  Report Type: 
  Country: None (occurrence: None)
  Receive Date: 20111206
  Receipt Date: 20111123
  Transmission Date: 20120403
  Serious: No
  Sender: FDA-Public Use
  Company Number: US-B.I. PHARMACEUTICALS,INC./RIDGEFIELD-2011-BP-26809BP

PATIENT
  Sex: Female

DRUGS (8)
  1. METOPROLOL [Concomitant]
     Indication: HYPERTENSION
  2. BENADRYL [Concomitant]
     Indication: INSOMNIA
     Dosage: 25 MG
     Route: 048
  3. MULTI-VITAMIN [Concomitant]
     Indication: SUPPLEMENTATION THERAPY
  4. LORTAB [Concomitant]
     Indication: RHEUMATOID ARTHRITIS
  5. LASIX [Concomitant]
     Indication: CARDIAC FAILURE CONGESTIVE
     Dates: start: 20111125
  6. PRADAXA [Suspect]
     Indication: ATRIAL FIBRILLATION
     Dosage: 300 MG
     Route: 048
     Dates: start: 20111021
  7. HUMIRA [Concomitant]
     Indication: RHEUMATOID ARTHRITIS
  8. PREMARIN [Concomitant]
     Indication: SUPPLEMENTATION THERAPY

REACTIONS (9)
  - DYSPEPSIA [None]
  - HAEMATURIA [None]
  - DECREASED APPETITE [None]
  - WEIGHT DECREASED [None]
  - CRYING [None]
  - CHEST PAIN [None]
  - HEADACHE [None]
  - ARTHRALGIA [None]
  - HAEMATOCHEZIA [None]
